FAERS Safety Report 8387251-9 (Version None)
Quarter: 2012Q2

REPORT INFORMATION
  Report Type: 
  Country: None (occurrence: None)
  Receive Date: 20120525
  Receipt Date: 20120511
  Transmission Date: 20120825
  Serious: Yes (Other)
  Sender: FDA-Public Use
  Company Number: DE-ROCHE-1070244

PATIENT
  Sex: Female

DRUGS (10)
  1. SEREVENT [Concomitant]
  2. HERCEPTIN [Suspect]
     Indication: BREAST CANCER
  3. JODID [Concomitant]
  4. HERCEPTIN [Suspect]
     Dosage: 11 CYCLE
     Dates: start: 20120424
  5. TRIMIPRAMINE MALEATE [Concomitant]
  6. LISINOPRIL [Concomitant]
  7. ACETAMINOPHEN [Concomitant]
  8. JUNIK [Concomitant]
  9. NAVELBINE [Suspect]
     Indication: BREAST CANCER
     Dates: end: 20111201
  10. EUNOVA [Concomitant]

REACTIONS (3)
  - TINNITUS [None]
  - MACULAR OEDEMA [None]
  - DIZZINESS [None]
